FAERS Safety Report 8561920-X (Version None)
Quarter: 2012Q3

REPORT INFORMATION
  Report Type: 
  Country: None (occurrence: None)
  Receive Date: 20120802
  Receipt Date: 20120706
  Transmission Date: 20120928
  Serious: No
  Sender: FDA-Public Use
  Company Number: US-AMGEN-USASP2011020350

PATIENT
  Age: 61 Year
  Sex: Male

DRUGS (5)
  1. FOLIC ACID [Concomitant]
  2. ENBREL [Suspect]
     Indication: RHEUMATOID ARTHRITIS
     Dosage: 50 MG, QWK
     Dates: start: 20090115
  3. LISINOPRIL [Concomitant]
  4. METHOTREXATE [Concomitant]
  5. ZOCOR [Concomitant]

REACTIONS (1)
  - DERMATITIS CONTACT [None]
